FAERS Safety Report 14093858 (Version 1)
Quarter: 2017Q4

REPORT INFORMATION
  Report Type: Spontaneous
  Country: SI (occurrence: SI)
  Receive Date: 20171016
  Receipt Date: 20171016
  Transmission Date: 20180321
  Serious: Yes (Death)
  Sender: FDA-Public Use
  Company Number: SI-BAYER-2017-191366

PATIENT
  Age: 72 Year
  Sex: Male

DRUGS (2)
  1. STIVARGA [Suspect]
     Active Substance: REGORAFENIB
     Indication: COLORECTAL CANCER METASTATIC
     Dosage: UNK
  2. STIVARGA [Suspect]
     Active Substance: REGORAFENIB
     Indication: COLORECTAL CANCER METASTATIC
     Dosage: REDUCED DOSE

REACTIONS (9)
  - Metastases to liver [Fatal]
  - Nutritional condition abnormal [None]
  - Weight decreased [None]
  - Fatigue [Recovering/Resolving]
  - Metastases to lung [Fatal]
  - Diarrhoea [None]
  - Colorectal cancer metastatic [Fatal]
  - Mucosal inflammation [None]
  - Palmar-plantar erythrodysaesthesia syndrome [None]

NARRATIVE: CASE EVENT DATE: 201604
